FAERS Safety Report 6201142-0 (Version None)
Quarter: 2009Q2

REPORT INFORMATION
  Report Type: 
  Country: None (occurrence: None)
  Receive Date: 20090526
  Receipt Date: 20090519
  Transmission Date: 20091009
  Serious: Yes (Hospitalization)
  Sender: FDA-Public Use
  Company Number: US-JNJFOC-20090203501

PATIENT
  Sex: Female
  Weight: 76.2 kg

DRUGS (5)
  1. DURAGESIC-100 [Suspect]
     Indication: SPINAL COLUMN STENOSIS
     Route: 062
  2. PAXIL [Concomitant]
     Indication: FIBROMYALGIA
     Route: 048
  3. FOLIC ACID [Concomitant]
     Indication: RHEUMATOID ARTHRITIS
     Route: 048
  4. METHOTRAXATE [Concomitant]
     Indication: RHEUMATOID ARTHRITIS
     Route: 058
  5. LEUCOVORIN CALCIUM [Concomitant]
     Indication: RHEUMATOID ARTHRITIS
     Route: 030

REACTIONS (2)
  - KNEE ARTHROPLASTY [None]
  - RHEUMATOID ARTHRITIS [None]
